FAERS Safety Report 21053414 (Version 3)
Quarter: 2022Q3

REPORT INFORMATION
  Report Type: Spontaneous
  Country: FR (occurrence: FR)
  Receive Date: 20220707
  Receipt Date: 20220921
  Transmission Date: 20221027
  Serious: Yes (Life-Threatening, Hospitalization, Other)
  Sender: FDA-Public Use
  Company Number: None

PATIENT
  Age: 33 Year
  Sex: Male

DRUGS (2)
  1. DUPIXENT [Suspect]
     Active Substance: DUPILUMAB
     Indication: Aspirin-exacerbated respiratory disease
     Dosage: 300 MG
     Route: 065
     Dates: start: 2022
  2. DUPIXENT [Suspect]
     Active Substance: DUPILUMAB
     Indication: Nasal polyps
     Dosage: 3 DF
     Route: 065
     Dates: start: 202204, end: 20220525

REACTIONS (6)
  - Ischaemic stroke [Recovering/Resolving]
  - Vertebral artery dissection [Recovering/Resolving]
  - Cerebrovascular accident [Unknown]
  - Dizziness [Unknown]
  - Headache [Unknown]
  - Product use in unapproved indication [Unknown]

NARRATIVE: CASE EVENT DATE: 20220527
